FAERS Safety Report 20721068 (Version 2)
Quarter: 2022Q2

REPORT INFORMATION
  Report Type: Report from Study
  Country: US (occurrence: US)
  Receive Date: 20220418
  Receipt Date: 20220429
  Transmission Date: 20220720
  Serious: Yes (Hospitalization, Other)
  Sender: FDA-Public Use
  Company Number: US-NOVARTISPH-NVSC2022US084210

PATIENT
  Sex: Female

DRUGS (1)
  1. ZORTRESS [Suspect]
     Active Substance: EVEROLIMUS
     Indication: Product used for unknown indication
     Dosage: 7 DOSAGE FORM ( (3 TABS (3MG) IN AM, 4 TABS (4MG) IN PM)
     Route: 048
     Dates: start: 20190829

REACTIONS (5)
  - Hepatic function abnormal [Unknown]
  - Renal failure [Unknown]
  - Malaise [Unknown]
  - Product dose omission issue [Unknown]
  - Incorrect dose administered [Unknown]
